FAERS Safety Report 6473810-7 (Version None)
Quarter: 2009Q4

REPORT INFORMATION
  Report Type: 
  Country: None (occurrence: None)
  Receive Date: 20091204
  Receipt Date: 20091029
  Transmission Date: 20100525
  Serious: No
  Sender: FDA-Public Use
  Company Number: US-BAYER-200938915NA

PATIENT
  Age: 39 Year
  Sex: Female

DRUGS (3)
  1. ULTRAVIST 300 [Suspect]
     Indication: COMPUTERISED TOMOGRAM
     Dosage: TOTAL DAILY DOSE: 60 ML  UNIT DOSE: 500 ML
     Route: 042
  2. PREDNISONE [Concomitant]
     Indication: PREMEDICATION
  3. PRILOSEC [Concomitant]
     Indication: PREMEDICATION

REACTIONS (1)
  - URTICARIA [None]
